FAERS Safety Report 11839205 (Version 1)
Quarter: 2015Q4

REPORT INFORMATION
  Report Type: Spontaneous
  Country: HK (occurrence: HK)
  Receive Date: 20151216
  Receipt Date: 20151216
  Transmission Date: 20160305
  Serious: Yes (Hospitalization, Other)
  Sender: FDA-Public Use
  Company Number: HK-PAR PHARMACEUTICAL COMPANIES-2015SCPR015015

PATIENT

DRUGS (1)
  1. IMIPRAMINE HCL [Suspect]
     Active Substance: IMIPRAMINE HYDROCHLORIDE
     Dosage: TOTAL 7 TABLETS, SINGLE
     Route: 048
     Dates: start: 201403, end: 201403

REACTIONS (10)
  - Metabolic acidosis [Recovering/Resolving]
  - Accidental exposure to product by child [Unknown]
  - Vomiting [Unknown]
  - Hyperventilation [Recovered/Resolved]
  - Toxicity to various agents [Unknown]
  - QRS axis abnormal [Unknown]
  - Hypotension [Recovering/Resolving]
  - Tachycardia [Unknown]
  - Electrocardiogram QRS complex prolonged [Recovered/Resolved]
  - Seizure [Recovered/Resolved]

NARRATIVE: CASE EVENT DATE: 201403
